FAERS Safety Report 11541694 (Version 1)
Quarter: 2015Q3

REPORT INFORMATION
  Report Type: Spontaneous
  Country: US (occurrence: US)
  Receive Date: 20150903
  Receipt Date: 20150903
  Transmission Date: 20151125
  Serious: No
  Sender: FDA-Public Use
  Company Number: US-ELI_LILLY_AND_COMPANY-US201108002969

PATIENT
  Age: 71 Year
  Sex: Female

DRUGS (1)
  1. HUMALOG MIX75/25 [Suspect]
     Active Substance: INSULIN LISPRO
     Indication: DIABETES MELLITUS
     Dosage: UNK, PRN

REACTIONS (4)
  - Visual impairment [Unknown]
  - Medication error [Unknown]
  - Peripheral swelling [Unknown]
  - Arthritis [Unknown]

NARRATIVE: CASE EVENT DATE: 20110802
